FAERS Safety Report 6909995-5 (Version None)
Quarter: 2010Q3

REPORT INFORMATION
  Report Type: 
  Country: None (occurrence: None)
  Receive Date: 20100806
  Receipt Date: 20100727
  Transmission Date: 20110219
  Serious: No
  Sender: FDA-Public Use
  Company Number: US-BIOGENIDEC-2010BI025604

PATIENT
  Age: 65 Year
  Sex: Female
  Weight: 91 kg

DRUGS (5)
  1. AVONEX [Suspect]
     Indication: MULTIPLE SCLEROSIS
     Route: 030
     Dates: start: 20001003, end: 20070101
  2. AVONEX [Suspect]
     Route: 030
     Dates: start: 20100402
  3. METFORMIN HCL [Concomitant]
     Indication: DIABETES MELLITUS
  4. KLONOPIN [Concomitant]
     Indication: ANXIETY
  5. ATIVAN [Concomitant]
     Indication: ANXIETY

REACTIONS (3)
  - ABASIA [None]
  - HYPOAESTHESIA [None]
  - INFLUENZA LIKE ILLNESS [None]
